FAERS Safety Report 4765971-2 (Version None)
Quarter: 2005Q3

REPORT INFORMATION
  Report Type: 
  Country: None (occurrence: None)
  Receive Date: 20050906
  Receipt Date: 20050818
  Transmission Date: 20060218
  Serious: Yes (Hospitalization)
  Sender: FDA-Public Use
  Company Number: GBS050818223

PATIENT
  Sex: Female
  Weight: 86 kg

DRUGS (2)
  1. FLUOXETINE HCL [Suspect]
     Dosage: 80 MG
  2. QUETIAPINE FUMARATE [Concomitant]

REACTIONS (5)
  - BLOOD CHOLESTEROL INCREASED [None]
  - CARDIAC ARREST [None]
  - CORONARY ARTERY DISEASE [None]
  - DRUG INTERACTION [None]
  - MYOCARDIAL INFARCTION [None]
